FAERS Safety Report 16892288 (Version 2)
Quarter: 2020Q1

REPORT INFORMATION
  Report Type: Spontaneous
  Country: US (occurrence: US)
  Receive Date: 20191007
  Receipt Date: 20200323
  Transmission Date: 20200409
  Serious: No
  Sender: FDA-Public Use
  Company Number: US-SA-2019SA270642

PATIENT
  Age: 33 Year
  Sex: Female

DRUGS (4)
  1. SALMETEROL AND FLUTICASONE [Concomitant]
     Active Substance: FLUTICASONE PROPIONATE\SALMETEROL XINAFOATE
     Route: 055
  2. DUPIXENT [Suspect]
     Active Substance: DUPILUMAB
     Dosage: 1 DF, QOW
     Route: 058
     Dates: start: 20191002
  3. TACROLIMUS. [Concomitant]
     Active Substance: TACROLIMUS
  4. DUPIXENT [Suspect]
     Active Substance: DUPILUMAB
     Indication: DERMATITIS ATOPIC
     Dosage: 2 DF, 1X
     Route: 058
     Dates: start: 20190918, end: 20190918

REACTIONS (4)
  - Product use issue [Unknown]
  - Dermatitis atopic [Not Recovered/Not Resolved]
  - Injection site swelling [Not Recovered/Not Resolved]
  - Drug ineffective [Unknown]

NARRATIVE: CASE EVENT DATE: 20190918
